FAERS Safety Report 22614618 (Version 3)
Quarter: 2024Q4

REPORT INFORMATION
  Report Type: Report from Study
  Country: GB (occurrence: GB)
  Receive Date: 20230619
  Receipt Date: 20241219
  Transmission Date: 20250115
  Serious: No
  Sender: ROCHE
  Company Number: GB-ROCHE-3369793

PATIENT
  Age: 42 Year
  Sex: Female

DRUGS (3)
  1. OCREVUS [Suspect]
     Active Substance: OCRELIZUMAB
     Indication: Relapsing-remitting multiple sclerosis
     Route: 065
  2. OCREVUS [Suspect]
     Active Substance: OCRELIZUMAB
     Route: 065
  3. OCREVUS [Suspect]
     Active Substance: OCRELIZUMAB
     Route: 065

REACTIONS (8)
  - COVID-19 [Recovered/Resolved]
  - Ear pruritus [Recovered/Resolved]
  - Throat irritation [Recovered/Resolved]
  - Hot flush [Recovered/Resolved]
  - Fatigue [Unknown]
  - Throat irritation [Recovered/Resolved]
  - Sinusitis [Recovered/Resolved]
  - Fatigue [Unknown]

NARRATIVE: CASE EVENT DATE: 20230523
